FAERS Safety Report 16248395 (Version 1)
Quarter: 2019Q2

REPORT INFORMATION
  Report Type: Report from Study
  Country: US (occurrence: US)
  Receive Date: 20190429
  Receipt Date: 20190429
  Transmission Date: 20190711
  Serious: No
  Sender: FDA-Public Use
  Company Number: PHEH2019US017556

PATIENT
  Age: 28 Year
  Sex: Male

DRUGS (1)
  1. COSENTYX [Suspect]
     Active Substance: SECUKINUMAB
     Indication: PSORIASIS
     Dosage: 150 MG, AT WEEKS 0, 1, 2, 3, 4 AND Q4W THEREAFTER
     Route: 058

REACTIONS (4)
  - Asthenia [Unknown]
  - Fatigue [Unknown]
  - Pain [Unknown]
  - Incorrect dose administered [Unknown]
